FAERS Safety Report 5723919-8 (Version None)
Quarter: 2008Q2

REPORT INFORMATION
  Report Type: 
  Country: None (occurrence: None)
  Receive Date: 20080430
  Receipt Date: 20080421
  Transmission Date: 20081010
  Serious: Yes (Hospitalization)
  Sender: FDA-Public Use
  Company Number: LV-SANOFI-SYNTHELABO-A01200804053

PATIENT
  Age: 67 Year
  Sex: Male
  Weight: 129 kg

DRUGS (7)
  1. GLUCOPHAGE [Concomitant]
     Indication: DIABETES MELLITUS
     Route: 048
     Dates: start: 20020101
  2. PLAVIX [Suspect]
     Indication: ANGIOPLASTY
     Route: 048
     Dates: start: 20070907, end: 20080310
  3. BETALOC ZOK [Concomitant]
     Indication: HYPERTENSION
     Route: 048
     Dates: start: 20030101
  4. ZOFISTAR [Concomitant]
     Indication: HYPERTENSION
     Route: 048
     Dates: start: 20030101
  5. DIAPREL [Concomitant]
     Indication: DIABETES MELLITUS
     Dosage: UNK
     Route: 065
  6. HJERTEMAGNYL [Concomitant]
     Indication: DRUG USE FOR UNKNOWN INDICATION
     Dosage: UNK
     Route: 065
  7. EZETROL [Concomitant]
     Indication: DRUG USE FOR UNKNOWN INDICATION
     Dosage: UNK
     Route: 065

REACTIONS (4)
  - RENAL FAILURE [None]
  - SPEECH DISORDER [None]
  - TREMOR [None]
  - VERTIGO [None]
